FAERS Safety Report 15905929 (Version 1)
Quarter: 2019Q1

REPORT INFORMATION
  Report Type: Report from Study
  Country: US (occurrence: US)
  Receive Date: 20190204
  Receipt Date: 20190204
  Transmission Date: 20190417
  Serious: Yes (Other)
  Sender: FDA-Public Use
  Company Number: US-EISAI MEDICAL RESEARCH-EC-2018-049041

PATIENT
  Age: 59 Year
  Sex: Male
  Weight: 101 kg

DRUGS (1)
  1. LENVIMA [Suspect]
     Active Substance: LENVATINIB
     Indication: HEPATOCELLULAR CARCINOMA
     Route: 048
     Dates: start: 20181130, end: 201901

REACTIONS (3)
  - Fatigue [Unknown]
  - Renal failure [Unknown]
  - Skin disorder [Unknown]

NARRATIVE: CASE EVENT DATE: 201812
